FAERS Safety Report 7557498-X (Version None)
Quarter: 2011Q2

REPORT INFORMATION
  Report Type: 
  Country: None (occurrence: None)
  Receive Date: 20110620
  Receipt Date: 20110615
  Transmission Date: 20111010
  Serious: Yes (Hospitalization)
  Sender: FDA-Public Use
  Company Number: IT-TEVA-286805ISR

PATIENT
  Sex: Female

DRUGS (2)
  1. CISPLATIN [Suspect]
     Indication: HODGKIN'S DISEASE
     Dosage: 100 MG/M^2
     Route: 042
     Dates: start: 20091029, end: 20091030
  2. CYTARABINE [Concomitant]
     Indication: HODGKIN'S DISEASE
     Dates: start: 20091030, end: 20091031

REACTIONS (2)
  - ABDOMINAL PAIN [None]
  - VOMITING [None]
